FAERS Safety Report 25924800 (Version 1)
Quarter: 2025Q4

REPORT INFORMATION
  Report Type: Spontaneous
  Country: US (occurrence: None)
  Receive Date: 20251013
  Receipt Date: 20251013
  Transmission Date: 20260117
  Serious: Yes (Life-Threatening, Hospitalization, Disabling)
  Sender: FDA-CTU
  Company Number: None

PATIENT
  Age: 56 Year
  Sex: Male
  Weight: 78.75 kg

DRUGS (11)
  1. FOSAMAX [Suspect]
     Active Substance: ALENDRONATE SODIUM
     Indication: Osteoporosis
     Dates: start: 20190214, end: 20190215
  2. CYCLOBENZAPRINE [Concomitant]
     Active Substance: CYCLOBENZAPRINE
  3. LANSOPRAZOLE [Concomitant]
     Active Substance: LANSOPRAZOLE
  4. Benezepril [Concomitant]
  5. VALSARTAN [Concomitant]
     Active Substance: VALSARTAN
  6. ACETAMINOPHEN [Concomitant]
     Active Substance: ACETAMINOPHEN
  7. MULTI-VITAMIN [Concomitant]
     Active Substance: .ALPHA.-TOCOPHEROL ACETATE, DL-\ASCORBIC ACID\CYANOCOBALAMIN\FLUORIDE ION\FOLIC ACID\NIACIN\PYRIDOXI
  8. Centrum/equate silver [Concomitant]
  9. Vitamin B Complex plus vitamin C [Concomitant]
  10. L-Arginine 500 mg [Concomitant]
  11. Proanthenol: Oligomeric Proanthocyanins [Concomitant]

REACTIONS (8)
  - Paraesthesia oral [None]
  - Aphasia [None]
  - Muscle atrophy [None]
  - Muscle atrophy [None]
  - Tongue atrophy [None]
  - Pneumonia aspiration [None]
  - Palatal disorder [None]
  - Laryngeal dyskinesia [None]

NARRATIVE: CASE EVENT DATE: 20190215
